FAERS Safety Report 7401705-0 (Version None)
Quarter: 2011Q1

REPORT INFORMATION
  Report Type: 
  Country: None (occurrence: None)
  Receive Date: 20110329
  Receipt Date: 20110316
  Transmission Date: 20110831
  Serious: Yes (Other)
  Sender: FDA-Public Use
  Company Number: 1000019119

PATIENT
  Age: 45 Year
  Sex: Male
  Weight: 66 kg

DRUGS (2)
  1. XANAX (ALPROAZOLAM) - (ALPROAZOLAM) [Concomitant]
  2. MILNACIPRAN (MILNACIPRAN HYDROCHLORIDE) (CAPSULES) [Suspect]
     Indication: DEPRESSION
     Dosage: 50 MG (25 NGM 2 IN 1 D) ORAL
     Route: 048
     Dates: start: 20101019, end: 20101019

REACTIONS (2)
  - SYNCOPE [None]
  - FALL [None]
